FAERS Safety Report 14147141 (Version 1)
Quarter: 2017Q4

REPORT INFORMATION
  Report Type: Spontaneous
  Country: IT (occurrence: IT)
  Receive Date: 20171031
  Receipt Date: 20171031
  Transmission Date: 20180321
  Serious: Yes (Other)
  Sender: FDA-Public Use
  Company Number: IT-BAYER-2017-206889

PATIENT
  Age: 22 Year
  Sex: Male

DRUGS (1)
  1. ACETYLSALICYLIC ACID({=100 MG) [Suspect]
     Active Substance: ASPIRIN

REACTIONS (5)
  - Spinal cord ischaemia [Unknown]
  - Vascular stent thrombosis [None]
  - Treatment noncompliance [None]
  - Paraplegia [Not Recovered/Not Resolved]
  - Acute kidney injury [Recovering/Resolving]
